FAERS Safety Report 13981334 (Version 7)
Quarter: 2022Q2

REPORT INFORMATION
  Report Type: Spontaneous
  Country: US (occurrence: US)
  Receive Date: 20170918
  Receipt Date: 20220506
  Transmission Date: 20220721
  Serious: No
  Sender: FDA-Public Use
  Company Number: US-PFIZER INC-2017244111

PATIENT
  Age: 24 Year
  Sex: Female
  Weight: 73 kg

DRUGS (3)
  1. XELJANZ XR [Suspect]
     Active Substance: TOFACITINIB CITRATE
     Indication: Alopecia
     Dosage: 11 MG, 1X/DAY
     Route: 048
     Dates: start: 201706
  2. XELJANZ XR [Suspect]
     Active Substance: TOFACITINIB CITRATE
     Indication: Alopecia areata
  3. XELJANZ XR [Suspect]
     Active Substance: TOFACITINIB CITRATE
     Indication: Alopecia totalis

REACTIONS (3)
  - Off label use [Unknown]
  - Product dose omission issue [Unknown]
  - Acne [Recovering/Resolving]

NARRATIVE: CASE EVENT DATE: 20170601
